FAERS Safety Report 9507479 (Version 1)
Quarter: 2013Q3

REPORT INFORMATION
  Report Type: Spontaneous
  Country: US (occurrence: None)
  Receive Date: 20130906
  Receipt Date: 20130906
  Transmission Date: 20140515
  Serious: Yes (Disabling)
  Sender: FDA-Public Use
  Company Number: None

PATIENT
  Age: 71 Year
  Sex: Female
  Weight: 54.43 kg

DRUGS (1)
  1. PROLIA [Suspect]
     Indication: OSTEOPOROSIS
     Dosage: 1 SUBCUTANEOUS INJECTION -- GIVEN INTO/UNDER THE SKIN
     Route: 058
     Dates: start: 20130515, end: 20130515

REACTIONS (5)
  - Arthralgia [None]
  - Bone pain [None]
  - Pain in jaw [None]
  - Myalgia [None]
  - Sleep disorder [None]
